FAERS Safety Report 16667699 (Version 1)
Quarter: 2019Q3

REPORT INFORMATION
  Report Type: Report from Study
  Country: DE (occurrence: DE)
  Receive Date: 20190805
  Receipt Date: 20190805
  Transmission Date: 20191004
  Serious: Yes (Death)
  Sender: FDA-Public Use
  Company Number: DE-PFIZER INC-2019327238

PATIENT
  Age: 35 Year
  Sex: Male

DRUGS (12)
  1. METHADONE [Suspect]
     Active Substance: METHADONE HYDROCHLORIDE
     Dosage: UNK
  2. DICLOFENAC [Suspect]
     Active Substance: DICLOFENAC
     Dosage: UNK
  3. NORDOXEPIN [Suspect]
     Active Substance: DESMETHYLDOXEPIN
     Dosage: UNK
  4. MORPHINE SULFATE. [Suspect]
     Active Substance: MORPHINE SULFATE
     Dosage: UNK
  5. BUPRENORPHINE. [Suspect]
     Active Substance: BUPRENORPHINE
     Dosage: UNK
  6. ACETAMINOPHEN. [Suspect]
     Active Substance: ACETAMINOPHEN
     Dosage: UNK
  7. NORDAZEPAM [Suspect]
     Active Substance: NORDAZEPAM
     Dosage: UNK
  8. DOXEPIN [Suspect]
     Active Substance: DOXEPIN
     Dosage: UNK
  9. U-47700 [Suspect]
     Active Substance: U-47700
     Dosage: UNK
  10. DIAZEPAM. [Suspect]
     Active Substance: DIAZEPAM
     Dosage: UNK
  11. PREGABALIN. [Suspect]
     Active Substance: PREGABALIN
     Dosage: UNK
  12. TILIDINE [Suspect]
     Active Substance: TILIDINE
     Dosage: UNK

REACTIONS (3)
  - Toxicity to various agents [Fatal]
  - Pulmonary oedema [Fatal]
  - Brain oedema [Fatal]
